FAERS Safety Report 8967854 (Version 1)
Quarter: 2012Q4

REPORT INFORMATION
  Report Type: 
  Country: US (occurrence: US)
  Receive Date: 20121218
  Receipt Date: 20121218
  Transmission Date: 20130627
  Serious: No
  Sender: FDA-Public Use
  Company Number: US-MYLANLABS-2012S1008568

PATIENT
  Age: 24 Year
  Sex: Male
  Weight: 76 kg

DRUGS (2)
  1. ROCURONIUM BROMIDE [Suspect]
     Indication: INDUCTION AND MAINTENANCE OF ANAESTHESIA
     Route: 042
     Dates: start: 20120409, end: 20120409
  2. ROCURONIUM BROMIDE [Suspect]
     Indication: SPLENECTOMY
     Route: 042
     Dates: start: 20120409, end: 20120409

REACTIONS (2)
  - Drug ineffective [Recovered/Resolved]
  - Muscle tightness [Recovered/Resolved]
